FAERS Safety Report 6699764-6 (Version None)
Quarter: 2010Q2

REPORT INFORMATION
  Report Type: 
  Country: None (occurrence: None)
  Receive Date: 20100428
  Receipt Date: 20100414
  Transmission Date: 20101027
  Serious: Yes (Congenital Anomaly)
  Sender: FDA-Public Use
  Company Number: AU-JNJFOC-20100407103

PATIENT
  Sex: Female

DRUGS (1)
  1. TRETINOIN [Suspect]
     Indication: DRUG EXPOSURE DURING PREGNANCY
     Route: 064

REACTIONS (5)
  - DEXTROCARDIA [None]
  - DIAPHRAGMATIC HERNIA [None]
  - EXOMPHALOS [None]
  - LIMB REDUCTION DEFECT [None]
  - PERICARDIAL DISEASE [None]
